FAERS Safety Report 8545077-7 (Version None)
Quarter: 2012Q3

REPORT INFORMATION
  Report Type: 
  Country: None (occurrence: None)
  Receive Date: 20120727
  Receipt Date: 20120724
  Transmission Date: 20120928
  Serious: Yes (Other)
  Sender: FDA-Public Use
  Company Number: US-ROCHE-1092023

PATIENT
  Sex: Female

DRUGS (9)
  1. BONIVA [Suspect]
     Indication: OSTEITIS DEFORMANS
  2. BONIVA [Suspect]
     Indication: OSTEOPENIA
  3. ACTONEL [Suspect]
     Indication: OSTEOPENIA
     Dates: start: 19980101, end: 20100801
  4. FOSAMAX [Suspect]
     Indication: OSTEOPOROSIS
     Dates: start: 19980101, end: 20100801
  5. FOSAMAX [Suspect]
     Indication: OSTEOPENIA
  6. FOSAMAX [Suspect]
     Indication: OSTEITIS DEFORMANS
  7. ACTONEL [Suspect]
     Indication: OSTEITIS DEFORMANS
  8. BONIVA [Suspect]
     Indication: OSTEOPOROSIS
     Dates: start: 19980101, end: 20100801
  9. ACTONEL [Suspect]

REACTIONS (4)
  - LOW TURNOVER OSTEOPATHY [None]
  - EMOTIONAL DISTRESS [None]
  - FEMUR FRACTURE [None]
  - ANXIETY [None]
